FAERS Safety Report 12081228 (Version 2)
Quarter: 2016Q1

REPORT INFORMATION
  Report Type: Spontaneous
  Country: US (occurrence: US)
  Receive Date: 20160216
  Receipt Date: 20160330
  Transmission Date: 20160526
  Serious: No
  Sender: FDA-Public Use
  Company Number: US-LEO PHARMA-240154

PATIENT
  Age: 52 Year
  Sex: Female

DRUGS (3)
  1. PICATO [Suspect]
     Active Substance: INGENOL MEBUTATE
     Indication: PRECANCEROUS SKIN LESION
     Dates: start: 20160111, end: 20160113
  2. PICATO [Suspect]
     Active Substance: INGENOL MEBUTATE
     Indication: PRECANCEROUS SKIN LESION
  3. PICATO [Suspect]
     Active Substance: INGENOL MEBUTATE
     Indication: PRECANCEROUS SKIN LESION

REACTIONS (6)
  - Application site erythema [Not Recovered/Not Resolved]
  - Drug administration error [Unknown]
  - Drug administered at inappropriate site [Unknown]
  - Inappropriate schedule of drug administration [Unknown]
  - Application site burn [Not Recovered/Not Resolved]
  - Application site inflammation [Unknown]

NARRATIVE: CASE EVENT DATE: 20160111
